FAERS Safety Report 15957148 (Version 1)
Quarter: 2019Q1

REPORT INFORMATION
  Report Type: Spontaneous
  Country: US (occurrence: US)
  Receive Date: 20190213
  Receipt Date: 20190213
  Transmission Date: 20190417
  Serious: Yes (Other)
  Sender: FDA-Public Use
  Company Number: None

PATIENT
  Age: 62 Year
  Sex: Male
  Weight: 84.6 kg

DRUGS (15)
  1. LIDOCAINE 5% PATCH [Concomitant]
     Active Substance: LIDOCAINE
  2. MELATONIN 3 MG TABLET [Concomitant]
  3. REPATHA [Suspect]
     Active Substance: EVOLOCUMAB
     Indication: CORONARY ARTERY DISEASE
     Dosage: ?          OTHER FREQUENCY:EVERY 2 WEEKS;?
     Route: 058
     Dates: start: 20181219, end: 20190116
  4. LORAZEPAM 1 MG TABLET [Concomitant]
  5. OXYCODONE 10 MG TABLET [Concomitant]
     Active Substance: OXYCODONE
  6. SENNA 8.6 MG TABLET [Concomitant]
  7. MULTIVITAMIN [Concomitant]
     Active Substance: VITAMINS
  8. CLOPIDOGREL 75 MG TABLET [Concomitant]
  9. DULOXETINE 60 MG CAPSULE [Concomitant]
     Active Substance: DULOXETINE
  10. DOCUSATE 100 MG CAPSULE [Concomitant]
  11. METOPROLOL 25 MG TABLET [Concomitant]
     Active Substance: METOPROLOL
  12. ENSURE [Concomitant]
     Active Substance: AMINO ACIDS\DEXTROSE\ELECTROLYTES NOS\SOYBEAN OIL\VITAMINS
  13. NYSTATIN ORAL SUSPENSION [Concomitant]
     Active Substance: NYSTATIN
  14. METAMUCIL FIBER SUPPLEMENT [Concomitant]
  15. ASPIRIN 81 MG TABLET [Concomitant]

REACTIONS (10)
  - Influenza like illness [None]
  - Abdominal pain upper [None]
  - Sinus congestion [None]
  - Palpitations [None]
  - Acne [None]
  - Rash [None]
  - Skin reaction [None]
  - Feeling hot [None]
  - Nausea [None]
  - Fatigue [None]

NARRATIVE: CASE EVENT DATE: 20181219
